FAERS Safety Report 7294324-0 (Version None)
Quarter: 2011Q1

REPORT INFORMATION
  Report Type: 
  Country: None (occurrence: None)
  Receive Date: 20110215
  Receipt Date: 20110207
  Transmission Date: 20110831
  Serious: Yes (Hospitalization)
  Sender: FDA-Public Use
  Company Number: US-US-EMD SERONO, INC.-235340J09USA

PATIENT
  Sex: Male
  Weight: 82 kg

DRUGS (4)
  1. OXYBUTYNIN [Concomitant]
     Indication: POLLAKIURIA
  2. DONEPEZIL HCL [Concomitant]
     Indication: PROPHYLAXIS
  3. REBIF [Suspect]
     Indication: MULTIPLE SCLEROSIS
     Route: 058
     Dates: start: 20081223
  4. OXYBUTYNIN [Concomitant]
     Indication: NEPHROLITHIASIS

REACTIONS (1)
  - NEPHROLITHIASIS [None]
